FAERS Safety Report 8175207 (Version 2)
Quarter: 2013Q2

REPORT INFORMATION
  Report Type: Report from Study
  Country: US (occurrence: US)
  Receive Date: 20111011
  Receipt Date: 20130502
  Transmission Date: 20140414
  Serious: Yes (Hospitalization)
  Sender: FDA-Public Use
  Company Number: US-JNJFOC-20111000961

PATIENT
  Age: 16 Year
  Sex: Male
  Weight: 63.5 kg

DRUGS (4)
  1. REMICADE [Suspect]
     Indication: INFLAMMATORY BOWEL DISEASE
     Route: 042
     Dates: start: 20080830, end: 20090814
  2. ADALIMUMAB [Concomitant]
     Route: 065
     Dates: start: 20110521
  3. ADALIMUMAB [Concomitant]
     Route: 065
     Dates: start: 20091130
  4. PREDNISONE [Concomitant]
     Route: 065

REACTIONS (1)
  - Crohn^s disease [Recovered/Resolved]
